FAERS Safety Report 5541411-0 (Version None)
Quarter: 2007Q4

REPORT INFORMATION
  Report Type: 
  Country: None (occurrence: None)
  Receive Date: 20071209
  Receipt Date: 20061214
  Transmission Date: 20080405
  Serious: No
  Sender: FDA-Public Use
  Company Number: US-AMGEN-KDL203613

PATIENT
  Sex: Female
  Weight: 81.7 kg

DRUGS (3)
  1. ENBREL [Suspect]
     Indication: PSORIASIS
     Route: 058
     Dates: start: 20031001, end: 20061017
  2. ORAL CONTRACEPTIVE NOS [Concomitant]
     Dates: start: 20030601
  3. ZOLOFT [Concomitant]
     Dates: start: 20030601

REACTIONS (3)
  - PSORIASIS [None]
  - THERAPEUTIC RESPONSE DECREASED [None]
  - TUBERCULOSIS SKIN TEST POSITIVE [None]
